FAERS Safety Report 7259808-X (Version None)
Quarter: 2011Q1

REPORT INFORMATION
  Report Type: 
  Country: None (occurrence: None)
  Receive Date: 20110130
  Receipt Date: 20100905
  Transmission Date: 20110831
  Serious: No
  Sender: FDA-Public Use
  Company Number: US-ABBOTT-10P-163-0668945-00

PATIENT
  Age: 18 Year
  Sex: Female

DRUGS (5)
  1. PREVACID [Concomitant]
     Indication: GASTRIC PH DECREASED
  2. HUMIRA [Suspect]
     Indication: RHEUMATOID ARTHRITIS
     Dates: start: 20100827
  3. ZOLOFT [Concomitant]
     Indication: DEPRESSION
  4. FOLIC ACID [Concomitant]
     Indication: PRODUCT USED FOR UNKNOWN INDICATION
  5. METHOTREXATE [Concomitant]
     Indication: RHEUMATOID ARTHRITIS

REACTIONS (3)
  - VOMITING [None]
  - CHILLS [None]
  - PYREXIA [None]
